FAERS Safety Report 6537171-7 (Version None)
Quarter: 2010Q1

REPORT INFORMATION
  Report Type: 
  Country: None (occurrence: None)
  Receive Date: 20100110
  Receipt Date: 20091223
  Transmission Date: 20100710
  Serious: Yes (Hospitalization)
  Sender: FDA-Public Use
  Company Number: DEP_00318_2010

PATIENT
  Age: 61 Year
  Sex: Male

DRUGS (6)
  1. CIPROFLOXACIN [Suspect]
     Indication: DRUG USE FOR UNKNOWN INDICATION
     Dosage: (DF)
  2. VENLAFAXINE [Suspect]
     Indication: MAJOR DEPRESSION
     Dosage: (200 MG, DAILY)
  3. METHADONE HCL [Suspect]
     Indication: BACK PAIN
     Dosage: (DF)
  4. HYDROMORPHONE [Concomitant]
  5. OXYCODONE [Concomitant]
  6. METOCLORPAMIDE [Concomitant]

REACTIONS (12)
  - ANXIETY [None]
  - ATAXIA [None]
  - BACK PAIN [None]
  - DIARRHOEA [None]
  - DRUG SCREEN POSITIVE [None]
  - HYPERHIDROSIS [None]
  - HYPERREFLEXIA [None]
  - INTENTION TREMOR [None]
  - MYOCLONUS [None]
  - SEROTONIN SYNDROME [None]
  - TACHYCARDIA [None]
  - TACHYPNOEA [None]
